FAERS Safety Report 15397138 (Version 1)
Quarter: 2018Q3

REPORT INFORMATION
  Report Type: Other
  Country: US (occurrence: US)
  Receive Date: 20180918
  Receipt Date: 20180918
  Transmission Date: 20181010
  Serious: No
  Sender: FDA-Public Use
  Company Number: US-LEADIANT BIOSCIENCES INC-2018STPI000354

PATIENT
  Sex: Female

DRUGS (8)
  1. THIOGUANINE [Concomitant]
     Active Substance: THIOGUANINE
  2. TYLENOL [Concomitant]
     Active Substance: ACETAMINOPHEN
  3. EMEND [Concomitant]
     Active Substance: APREPITANT
  4. ZOFRAN [Concomitant]
     Active Substance: ONDANSETRON HYDROCHLORIDE
  5. VINCRISTINE [Concomitant]
     Active Substance: VINCRISTINE
  6. MATULANE [Suspect]
     Active Substance: PROCARBAZINE HYDROCHLORIDE
     Indication: BRAIN NEOPLASM MALIGNANT
     Dosage: 1 DF, QD
     Route: 048
     Dates: start: 20180329
  7. GLEOSTINE [Concomitant]
     Active Substance: LOMUSTINE
  8. ZYRTEC [Concomitant]
     Active Substance: CETIRIZINE HYDROCHLORIDE

REACTIONS (2)
  - Vomiting [Not Recovered/Not Resolved]
  - Nausea [Not Recovered/Not Resolved]
